FAERS Safety Report 24690162 (Version 2)
Quarter: 2024Q4

REPORT INFORMATION
  Report Type: Spontaneous
  Country: CH (occurrence: CH)
  Receive Date: 20241203
  Receipt Date: 20241205
  Transmission Date: 20250115
  Serious: Yes (Hospitalization, Other)
  Sender: ASTELLAS
  Company Number: None

PATIENT
  Age: 75 Year
  Sex: Male

DRUGS (22)
  1. AMBISOME [Suspect]
     Active Substance: AMPHOTERICIN B
     Indication: Pulmonary mucormycosis
     Dosage: 200 MG, Q6H
     Route: 042
     Dates: start: 20240809, end: 20240822
  2. CRESEMBA [Interacting]
     Active Substance: ISAVUCONAZONIUM SULFATE
     Indication: Pulmonary mucormycosis
     Dosage: 200 MG, QD
     Route: 048
     Dates: start: 20240725, end: 20240809
  3. CRESEMBA [Interacting]
     Active Substance: ISAVUCONAZONIUM SULFATE
     Dosage: 200 MG, QD
     Route: 048
     Dates: start: 20240823
  4. PROGRAF [Interacting]
     Active Substance: TACROLIMUS
     Indication: Prophylaxis against graft versus host disease
     Dosage: 1.5 MG, BID
     Route: 048
     Dates: start: 202407
  5. PROGRAF [Interacting]
     Active Substance: TACROLIMUS
     Route: 048
     Dates: start: 20240809
  6. PROGRAF [Interacting]
     Active Substance: TACROLIMUS
     Dosage: 1-0-0-1.5MG AM
     Route: 050
     Dates: start: 20240810
  7. PROGRAF [Interacting]
     Active Substance: TACROLIMUS
     Dosage: 1.5-0- 0-0 AM
     Route: 048
     Dates: start: 20240813
  8. VALACYCLOVIR HYDROCHLORIDE [Suspect]
     Active Substance: VALACYCLOVIR HYDROCHLORIDE
     Indication: Antiviral prophylaxis
     Dosage: 500 MG, QD, 1-0-0-0
     Route: 048
  9. PANTOPRAZOLE SODIUM [Suspect]
     Active Substance: PANTOPRAZOLE SODIUM
     Indication: Prophylaxis against gastrointestinal ulcer
     Dosage: 20 MG, QD, 1-0-0-0
     Route: 065
  10. SULFAMETHOXAZOLE\TRIMETHOPRIM [Suspect]
     Active Substance: SULFAMETHOXAZOLE\TRIMETHOPRIM
     Indication: Antifungal prophylaxis
     Dosage: 1 DOSAGE FORM, QOD, MO, MI, FR
     Route: 050
  11. CELLCEPT [Interacting]
     Active Substance: MYCOPHENOLATE MOFETIL
     Indication: Prophylaxis against graft versus host disease
     Dosage: 1000 MG, BID
     Route: 048
     Dates: end: 20240806
  12. PREVYMIS [Interacting]
     Active Substance: LETERMOVIR
     Indication: Antiviral prophylaxis
     Dosage: 480 MG, QD, 0-2-0-0
     Route: 048
  13. PREVYMIS [Interacting]
     Active Substance: LETERMOVIR
     Route: 050
  14. CALCIUM CARBONATE\CHOLECALCIFEROL [Concomitant]
     Active Substance: CALCIUM CARBONATE\CHOLECALCIFEROL
     Indication: Product used for unknown indication
     Dosage: 1-0-0-0
     Route: 065
  15. CHOLECALCIFEROL [Concomitant]
     Active Substance: CHOLECALCIFEROL
     Indication: Product used for unknown indication
     Dosage: 4000 I.E./ML, DIENSTAG
     Route: 065
  16. ACETAMINOPHEN [Concomitant]
     Active Substance: ACETAMINOPHEN
     Indication: Product used for unknown indication
     Dosage: UNK
     Route: 065
     Dates: end: 20240811
  17. MAGNESIUM ASPARTATE HYDROCHLORIDE [Concomitant]
     Active Substance: MAGNESIUM ASPARTATE HYDROCHLORIDE
     Indication: Product used for unknown indication
     Dosage: 10 MMOL, QD, 0-1-0-0
     Route: 065
  18. FRAGMIN [Concomitant]
     Active Substance: DALTEPARIN SODIUM
     Indication: Product used for unknown indication
     Dosage: 5000 I.E./0.2ML,  0-1-0-0
     Route: 065
  19. CLEMASTINE FUMARATE [Concomitant]
     Active Substance: CLEMASTINE FUMARATE
     Indication: Product used for unknown indication
     Dosage: UNK
     Route: 065
     Dates: end: 20240811
  20. SUPRADYN PRO ENERGY COMPLEX [Concomitant]
     Indication: Product used for unknown indication
     Dosage: 0-1-0-0
     Route: 065
  21. MAGNESIUM SULFATE [Concomitant]
     Active Substance: MAGNESIUM SULFATE
     Indication: Product used for unknown indication
     Dosage: 10 %
     Route: 065
     Dates: end: 20240810
  22. FREKA-CLYSS [Concomitant]
     Indication: Product used for unknown indication
     Route: 065
     Dates: end: 20240812

REACTIONS (2)
  - Acute kidney injury [Recovering/Resolving]
  - Drug interaction [Recovering/Resolving]
